FAERS Safety Report 6071155-0 (Version None)
Quarter: 2009Q1

REPORT INFORMATION
  Report Type: 
  Country: None (occurrence: None)
  Receive Date: 20090209
  Receipt Date: 20090127
  Transmission Date: 20090719
  Serious: Yes (Other)
  Sender: FDA-Public Use
  Company Number: US-ELI_LILLY_AND_COMPANY-US200901001335

PATIENT
  Age: 56 Year
  Sex: Female

DRUGS (2)
  1. EVISTA [Suspect]
     Indication: OSTEOPOROSIS
     Dosage: 60 MG, UNKNOWN
     Route: 048
     Dates: start: 20081001
  2. CALCIUM W/VITAMIN D NOS [Concomitant]
     Dosage: UNK, UNKNOWN
     Route: 065

REACTIONS (2)
  - FALL [None]
  - HUMERUS FRACTURE [None]
